FAERS Safety Report 5075924-5 (Version None)
Quarter: 2006Q3

REPORT INFORMATION
  Report Type: 
  Country: None (occurrence: None)
  Receive Date: 20060714
  Receipt Date: 20060503
  Transmission Date: 20061208
  Serious: No
  Sender: FDA-Public Use
  Company Number: 2006SP001930

PATIENT
  Age: 35 Year
  Sex: Male
  Weight: 77.1115 kg

DRUGS (4)
  1. LUNESTA [Suspect]
     Indication: INSOMNIA
     Dosage: 3 MG HS ORAL ; 1 MG HS ORAL ; 2 MG HS ORAL
     Route: 048
     Dates: start: 20050801
  2. WELLBUTRIN [Concomitant]
  3. ADDERALL 10 [Concomitant]
  4. TRAZODONE HCL [Concomitant]

REACTIONS (1)
  - INITIAL INSOMNIA [None]
